FAERS Safety Report 10440682 (Version 1)
Quarter: 2014Q3

REPORT INFORMATION
  Report Type: Spontaneous
  Country: US (occurrence: None)
  Receive Date: 20140905
  Receipt Date: 20140905
  Transmission Date: 20150326
  Serious: Yes (Hospitalization, Other)
  Sender: FDA-Public Use
  Company Number: None

PATIENT
  Age: 51 Year
  Sex: Female
  Weight: 74.84 kg

DRUGS (15)
  1. ATORVASTATIN [Concomitant]
     Active Substance: ATORVASTATIN
  2. MELOXICAM. [Concomitant]
     Active Substance: MELOXICAM
  3. CLONAZEPAM. [Concomitant]
     Active Substance: CLONAZEPAM
  4. BENZONATATE. [Concomitant]
     Active Substance: BENZONATATE
  5. ONDANSETRON [Concomitant]
     Active Substance: ONDANSETRON
  6. LEVOFLOXACIN [Concomitant]
     Active Substance: LEVOFLOXACIN
  7. DOCUSATE [Concomitant]
     Active Substance: DOCUSATE
  8. X-VATE [Concomitant]
  9. PREDNISONE. [Suspect]
     Active Substance: PREDNISONE
     Indication: MULTIPLE ALLERGIES
     Dosage: 21 TABLETS 3 TIMES A DAY TAKE 1 TABLET BY MOUTH THREE TIMES A DAY. FOR  7 DAYS
     Route: 048
     Dates: start: 20140727, end: 20140812
  10. PROMETHAZINE [Concomitant]
     Active Substance: PROMETHAZINE\PROMETHAZINE HYDROCHLORIDE
  11. ALBUTEROL. [Concomitant]
     Active Substance: ALBUTEROL
  12. PREDNISONE. [Suspect]
     Active Substance: PREDNISONE
     Indication: ARTHRITIS
     Dosage: 21 TABLETS 3 TIMES A DAY TAKE 1 TABLET BY MOUTH THREE TIMES A DAY. FOR  7 DAYS
     Route: 048
     Dates: start: 20140727, end: 20140812
  13. METFORMIN [Concomitant]
     Active Substance: METFORMIN HYDROCHLORIDE
  14. PREDNISONE. [Suspect]
     Active Substance: PREDNISONE
     Indication: DYSPNOEA
     Dosage: 21 TABLETS 3 TIMES A DAY TAKE 1 TABLET BY MOUTH THREE TIMES A DAY. FOR  7 DAYS
     Route: 048
     Dates: start: 20140727, end: 20140812
  15. OMEPRAZOLE. [Concomitant]
     Active Substance: OMEPRAZOLE

REACTIONS (2)
  - Dyspnoea [None]
  - Asthenia [None]
